FAERS Safety Report 4660335-4 (Version None)
Quarter: 2005Q2

REPORT INFORMATION
  Report Type: 
  Country: None (occurrence: None)
  Receive Date: 20050511
  Receipt Date: 20050511
  Transmission Date: 20051028
  Serious: Yes (Hospitalization)
  Sender: FDA-Public Use
  Company Number: CTU 248268

PATIENT
  Age: 51 Year
  Sex: Male
  Weight: 124 kg

DRUGS (8)
  1. AZATHIOPRINE [Suspect]
     Indication: COLITIS
     Dosage: 50MG PO TID
     Route: 048
     Dates: start: 20050121
  2. ALENDRONATE SODIUM [Concomitant]
  3. GLIPIZIDE [Concomitant]
  4. HYDROCHLOROTHIAZIDE [Concomitant]
  5. NPH INSULIN [Concomitant]
  6. LISINOPRIL [Concomitant]
  7. LOVASTATIN [Concomitant]
  8. PREDNISONE [Concomitant]

REACTIONS (5)
  - ABDOMINAL PAIN [None]
  - DIARRHOEA [None]
  - FAECES DISCOLOURED [None]
  - HYPOTENSION [None]
  - VOMITING [None]
